FAERS Safety Report 14472681 (Version 1)
Quarter: 2018Q1

REPORT INFORMATION
  Report Type: Spontaneous
  Country: GB (occurrence: GB)
  Receive Date: 20180201
  Receipt Date: 20180201
  Transmission Date: 20180509
  Serious: Yes (Death, Other)
  Sender: FDA-Public Use
  Company Number: GB-AMGEN-GBRSP2018013843

PATIENT

DRUGS (2)
  1. ENBREL [Suspect]
     Active Substance: ETANERCEPT
     Indication: EXPOSURE DURING PREGNANCY
     Dosage: UNK
     Route: 064
     Dates: start: 20040915, end: 20110715
  2. METHOTREXATE. [Concomitant]
     Active Substance: METHOTREXATE
     Indication: EXPOSURE DURING PREGNANCY
     Dosage: 10 MG, QWK
     Route: 064

REACTIONS (2)
  - Foetal distress syndrome [Fatal]
  - Foetal placental thrombosis [Fatal]

NARRATIVE: CASE EVENT DATE: 2015
